FAERS Safety Report 22018189 (Version 1)
Quarter: 2023Q1

REPORT INFORMATION
  Report Type: Report from Study
  Country: CO (occurrence: CO)
  Receive Date: 20230221
  Receipt Date: 20230221
  Transmission Date: 20230418
  Serious: Yes (Death, Hospitalization, Other)
  Sender: FDA-Public Use
  Company Number: CO-UNITED THERAPEUTICS-UNT-2023-003981

PATIENT

DRUGS (11)
  1. TREPROSTINIL SODIUM [Suspect]
     Active Substance: TREPROSTINIL SODIUM
     Indication: Pulmonary hypertension
     Dosage: 0.080 ?G/KG, CONTINUING (AT A RATE OF 0.024 ML/HR)
     Route: 058
  2. TREPROSTINIL SODIUM [Suspect]
     Active Substance: TREPROSTINIL SODIUM
     Dosage: 0.054 ?G/KG, CONTINUING
     Route: 058
     Dates: end: 202302
  3. TREPROSTINIL SODIUM [Suspect]
     Active Substance: TREPROSTINIL SODIUM
     Dosage: UNK, CONTINUING (DECREASED DOSE)
     Route: 058
     Dates: start: 20230214
  4. TREPROSTINIL SODIUM [Suspect]
     Active Substance: TREPROSTINIL SODIUM
     Dosage: UNK, CONTINUING
     Route: 058
     Dates: start: 20210325
  5. WARFARIN [Concomitant]
     Active Substance: WARFARIN
     Indication: Product used for unknown indication
     Dosage: UNK, QD (EVERY 24 HRS)
     Route: 065
     Dates: start: 20170331
  6. RIOCIGUAT [Concomitant]
     Active Substance: RIOCIGUAT
     Indication: Product used for unknown indication
     Dosage: UNK, Q8H (EVERY 8 HOURS)
     Route: 065
     Dates: start: 20200102
  7. AMBRISENTAN [Concomitant]
     Active Substance: AMBRISENTAN
     Indication: Product used for unknown indication
     Dosage: UNK, QD (EVERY 24 HOURS)
     Route: 065
     Dates: start: 20201120
  8. FUROSEMIDE [Concomitant]
     Active Substance: FUROSEMIDE
     Indication: Product used for unknown indication
     Dosage: UNK, QD (EVERY 24 HOURS)
     Route: 065
     Dates: start: 20180509
  9. ATORVASTATIN [Concomitant]
     Active Substance: ATORVASTATIN
     Indication: Product used for unknown indication
     Dosage: UNK, QD (EVERY 24 HOURS)
     Route: 065
     Dates: start: 20160204
  10. PREGABALIN [Concomitant]
     Active Substance: PREGABALIN
     Indication: Product used for unknown indication
     Dosage: UNK, Q12H (EVERY 12 HOURS)
     Route: 065
     Dates: start: 20200113
  11. SPIRONOLACTONE [Concomitant]
     Active Substance: SPIRONOLACTONE
     Indication: Product used for unknown indication
     Dosage: UNK, QD (EVERY 24 HOURS)
     Route: 065
     Dates: start: 20200509

REACTIONS (4)
  - Cardio-respiratory arrest [Fatal]
  - Pulmonary hypertension [Unknown]
  - Syncope [Unknown]
  - Periorbital haematoma [Unknown]

NARRATIVE: CASE EVENT DATE: 20230201
